FAERS Safety Report 4562783-X (Version None)
Quarter: 2005Q1

REPORT INFORMATION
  Report Type: 
  Country: None (occurrence: None)
  Receive Date: 20050121
  Receipt Date: 20050103
  Transmission Date: 20050727
  Serious: Yes (Other)
  Sender: FDA-Public Use
  Company Number: DE_050114988

PATIENT
  Age: 60 Year
  Sex: Female

DRUGS (7)
  1. YENTREVE (DULOXETINE HYDROCHLORIDE) [Suspect]
     Indication: URINARY INCONTINENCE
     Dosage: 40 MG/1 IN THE EVENING
     Dates: start: 20041201, end: 20041216
  2. ACERCOMP [Concomitant]
  3. SALOFALK (MESALAZINE) [Concomitant]
  4. ESCOR (NILVADIPINE) [Concomitant]
  5. DOXAZOSIN [Concomitant]
  6. NOVOTHYRAL [Concomitant]
  7. LEVOTHYROXINE SODIUM [Concomitant]

REACTIONS (2)
  - HEPATIC STEATOSIS [None]
  - PANCREATITIS [None]
